FAERS Safety Report 25803826 (Version 5)
Quarter: 2025Q4

REPORT INFORMATION
  Report Type: Spontaneous
  Country: US (occurrence: US)
  Receive Date: 20250915
  Receipt Date: 20251001
  Transmission Date: 20260118
  Serious: No
  Sender: PFIZER
  Company Number: US-PFIZER INC-PV202500110375

PATIENT
  Age: 69 Year
  Sex: Male
  Weight: 70.31 kg

DRUGS (3)
  1. DOCETAXEL [Suspect]
     Active Substance: DOCETAXEL
     Indication: Prostate cancer stage IV
     Dosage: UNK (80MG WAS SUPPOSED TO RECEIVE THE PRODUCT EVERY 3 WEEKS FOR 6 SESSIONS)
     Dates: start: 20250904
  2. LISINOPRIL [Concomitant]
     Active Substance: LISINOPRIL
     Indication: Blood pressure measurement
     Dosage: 20 MG, 1X/DAY (BEEN TAKING IT FOR 5-6 YEARS)
  3. TRAZODONE [Concomitant]
     Active Substance: TRAZODONE HYDROCHLORIDE
     Indication: Sleep disorder
     Dosage: 75 MG, 1X/DAY (AT NIGHT, BEEN TAKING IT 7-8 YEARS)

REACTIONS (4)
  - Chest discomfort [Recovered/Resolved]
  - Flushing [Recovered/Resolved]
  - Hypotension [Recovered/Resolved]
  - Drug hypersensitivity [Recovered/Resolved]

NARRATIVE: CASE EVENT DATE: 20250904
